FAERS Safety Report 7929926-9 (Version None)
Quarter: 2011Q4

REPORT INFORMATION
  Report Type: 
  Country: None (occurrence: None)
  Receive Date: 20111121
  Receipt Date: 20111117
  Transmission Date: 20120403
  Serious: Yes (Hospitalization)
  Sender: FDA-Public Use
  Company Number: NL-AMGEN-NLDSP2011060871

PATIENT
  Age: 53 Year
  Sex: Female
  Weight: 56 kg

DRUGS (16)
  1. PREDNISONE TAB [Suspect]
     Indication: DIFFUSE LARGE B-CELL LYMPHOMA
     Dosage: 100 MG, UNK
     Route: 048
     Dates: start: 20110729
  2. ALENDRONIC ACID [Concomitant]
     Indication: OSTEOPOROSIS
     Dosage: 70 MG, QWK
     Route: 048
  3. FLUCONAZOLE [Concomitant]
     Indication: PROPHYLAXIS
     Dosage: 200 MG, UNK
     Route: 048
  4. FOLIUMZUUR [Concomitant]
     Indication: PROPHYLAXIS
     Route: 048
  5. SULFASALAZINE [Concomitant]
     Indication: CROHN'S DISEASE
     Dosage: 1 G, UNK
     Route: 048
  6. CYCLOPHOSPHAMIDE [Suspect]
     Indication: DIFFUSE LARGE B-CELL LYMPHOMA
     Dosage: 1170 MG, UNK
     Route: 042
     Dates: start: 20110729
  7. VINCRISTINE [Suspect]
     Indication: DIFFUSE LARGE B-CELL LYMPHOMA
     Dosage: 2 MG, UNK
     Route: 042
     Dates: start: 20110729
  8. ALENDRONIC ACID [Concomitant]
     Indication: PROPHYLAXIS
     Route: 048
  9. NEUPOGEN [Suspect]
     Indication: DIFFUSE LARGE B-CELL LYMPHOMA
     Dosage: 6 MG, UNK
     Route: 058
     Dates: start: 20110730
  10. RITUXIMAB [Suspect]
     Indication: DIFFUSE LARGE B-CELL LYMPHOMA
     Dosage: 590 MG, UNK
     Route: 042
     Dates: start: 20110721
  11. TRAMADOL HYDROCHLORIDE [Concomitant]
     Indication: PAIN
     Dosage: 50 MG, UNK
     Route: 048
  12. NITROFURANTOIN [Concomitant]
     Indication: PROPHYLAXIS
     Dosage: 50 MG, QID
     Route: 048
  13. BECLOMETASONE DIPROPIONATE W/FORMOTEROL FUMAR [Concomitant]
     Indication: ASTHMA
     Dosage: UNK MG, UNK
     Route: 055
  14. DOXORUBICIN HCL [Suspect]
     Indication: DIFFUSE LARGE B-CELL LYMPHOMA
     Dosage: 75 MG, UNK
     Route: 042
     Dates: start: 20110729
  15. ENALAPRIL                          /00574902/ [Concomitant]
     Indication: HYPERTENSION
     Dosage: 10 MG, UNK
     Route: 048
  16. FUROSEMIDE [Concomitant]
     Indication: OEDEMA
     Dosage: 40 MG, UNK
     Route: 048

REACTIONS (3)
  - FEBRILE NEUTROPENIA [None]
  - NEUTROPENIC SEPSIS [None]
  - UROSEPSIS [None]
